FAERS Safety Report 14098772 (Version 2)
Quarter: 2017Q4

REPORT INFORMATION
  Report Type: Spontaneous
  Country: US (occurrence: US)
  Receive Date: 20171017
  Receipt Date: 20171107
  Transmission Date: 20180321
  Serious: No
  Sender: FDA-Public Use
  Company Number: US-B.I. PHARMACEUTICALS,INC./RIDGEFIELD-2017-BI-055100

PATIENT
  Age: 12 Year
  Sex: Female

DRUGS (3)
  1. DULERA [Concomitant]
     Active Substance: FORMOTEROL FUMARATE DIHYDRATE\MOMETASONE FUROATE
     Indication: ASTHMA
     Dosage: FORMULATION: INHALATION AEROSOL;
     Route: 065
  2. XOLAIR [Concomitant]
     Active Substance: OMALIZUMAB
     Indication: ASTHMA
     Dosage: FORMULATION: INHALATION AEROSOL;
     Route: 065
  3. SPIRIVA RESPIMAT [Suspect]
     Active Substance: TIOTROPIUM BROMIDE
     Indication: ASTHMA
     Dosage: 2 SPRAYS ONCE DAILY;  FORM STRENGTH: 1.25 MCG;
     Route: 055
     Dates: start: 201710, end: 201710

REACTIONS (5)
  - Urinary incontinence [Unknown]
  - Unevaluable event [Unknown]
  - Asterixis [Unknown]
  - Paraesthesia [Unknown]
  - Hallucination [Unknown]

NARRATIVE: CASE EVENT DATE: 201710
